FAERS Safety Report 5997709-5 (Version None)
Quarter: 2008Q4

REPORT INFORMATION
  Report Type: 
  Country: None (occurrence: None)
  Receive Date: 20081212
  Receipt Date: 20081119
  Transmission Date: 20090506
  Serious: No
  Sender: FDA-Public Use
  Company Number: US-ABBOTT-08P-163-0488526-00

PATIENT
  Sex: Female
  Weight: 113.5 kg

DRUGS (4)
  1. HUMIRA [Suspect]
     Indication: PSORIASIS
     Dates: start: 20060101
  2. HUMIRA [Suspect]
     Indication: PSORIATIC ARTHROPATHY
  3. AMITRIPTYLINE HCL [Concomitant]
     Indication: INSOMNIA
  4. IBUPROFEN [Concomitant]
     Indication: INSOMNIA

REACTIONS (2)
  - PSORIASIS [None]
  - PSORIATIC ARTHROPATHY [None]
